FAERS Safety Report 9758934 (Version 1)
Quarter: 2013Q4

REPORT INFORMATION
  Report Type: Spontaneous
  Country: US (occurrence: None)
  Receive Date: 20131216
  Receipt Date: 20131216
  Transmission Date: 20140711
  Serious: Yes (Hospitalization, Other)
  Sender: FDA-Public Use
  Company Number: 081329

PATIENT
  Sex: Female
  Weight: 57 kg

DRUGS (1)
  1. CIMZIA [Suspect]
     Indication: CROHN^S DISEASE
     Dosage: (400 MG /2 WEEKS, MG @ WEEKS 0,2,4;   THEN 400 MG EVERY 4 WEEKS SUBCUTANEOUS), (400 MG 1X/4 WEEKS,??

REACTIONS (2)
  - Intestinal obstruction [None]
  - Ileal fistula [None]
